FAERS Safety Report 20832079 (Version 1)
Quarter: 2022Q2

REPORT INFORMATION
  Report Type: 
  Country: None (occurrence: None)
  Receive Date: 20220516
  Receipt Date: 20220516
  Transmission Date: 20220721
  Serious: No
  Sender: FDA-Public Use
  Company Number: US-ROCHE-1597725

PATIENT
  Weight: 87.1 kg

DRUGS (14)
  1. IPILIMUMAB [Suspect]
     Active Substance: IPILIMUMAB
     Dosage: ON DAY 1 OF CYCLES 1-4,
     Dates: start: 20150316
  2. IPILIMUMAB [Suspect]
     Active Substance: IPILIMUMAB
     Dates: start: 20150406
  3. IPILIMUMAB [Suspect]
     Active Substance: IPILIMUMAB
     Dates: start: 20150427
  4. IPILIMUMAB [Suspect]
     Active Substance: IPILIMUMAB
     Dosage: LAST DOSE RECEIVED
     Dates: start: 20150521
  5. TERAZOSIN [Suspect]
     Active Substance: TERAZOSIN HYDROCHLORIDE
  6. ASPIRIN [Suspect]
     Active Substance: ASPIRIN
  7. LISINOPRIL [Suspect]
     Active Substance: LISINOPRIL
  8. ISOSORBIDE MONONITRATE [Suspect]
     Active Substance: ISOSORBIDE MONONITRATE
  9. POTASSIUM CHLORIDE [Suspect]
     Active Substance: POTASSIUM CHLORIDE
  10. HYDROCHLOROTHIAZIDE\LOSARTAN [Suspect]
     Active Substance: HYDROCHLOROTHIAZIDE\LOSARTAN
  11. BEVACIZUMAB [Suspect]
     Active Substance: BEVACIZUMAB
     Dates: start: 20150427
  12. BEVACIZUMAB [Suspect]
     Active Substance: BEVACIZUMAB
     Dosage: ON DAY 1 OF CYCLES 1-4
  13. BEVACIZUMAB [Suspect]
     Active Substance: BEVACIZUMAB
     Dosage: LAST DOSE REECIVED
     Dates: start: 20150521
  14. BEVACIZUMAB [Suspect]
     Active Substance: BEVACIZUMAB
     Dates: start: 20150427

REACTIONS (7)
  - Syncope [None]
  - Wound infection [None]
  - Embolism [None]
  - Hypertension [None]
  - Embolism [None]
  - Chronic kidney disease [None]
  - Hypotension [None]

NARRATIVE: CASE EVENT DATE: 20150521
